FAERS Safety Report 7982439-0 (Version None)
Quarter: 2011Q4

REPORT INFORMATION
  Report Type: 
  Country: None (occurrence: None)
  Receive Date: 20111215
  Receipt Date: 20111208
  Transmission Date: 20120403
  Serious: Yes (Death, Hospitalization, Other)
  Sender: FDA-Public Use
  Company Number: PHHY2011CH108746

PATIENT
  Age: 9 Year
  Sex: Female

DRUGS (2)
  1. BASILIXIMAB [Suspect]
     Indication: THROMBOTIC MICROANGIOPATHY
     Dosage: TWICE A WEEK
  2. METHYLPREDNISOLONE [Concomitant]

REACTIONS (13)
  - MULTI-ORGAN FAILURE [None]
  - PETECHIAE [None]
  - CYTOMEGALOVIRUS INFECTION [None]
  - PULMONARY ARTERIAL HYPERTENSION [None]
  - PERICARDIAL EFFUSION [None]
  - INFECTIOUS PLEURAL EFFUSION [None]
  - POSTERIOR REVERSIBLE ENCEPHALOPATHY SYNDROME [None]
  - RENAL FAILURE [None]
  - ANAEMIA [None]
  - THROMBOTIC MICROANGIOPATHY [None]
  - KIDNEY FIBROSIS [None]
  - HUMAN HERPESVIRUS 6 INFECTION [None]
  - RESPIRATORY FAILURE [None]
